FAERS Safety Report 25463987 (Version 1)
Quarter: 2025Q2

REPORT INFORMATION
  Report Type: Spontaneous
  Country: GB (occurrence: GB)
  Receive Date: 20250621
  Receipt Date: 20250621
  Transmission Date: 20250716
  Serious: Yes (Other)
  Sender: AUROBINDO
  Company Number: GB-MHRA-EMIS-11018-85f410fd-3a68-4f83-b94e-f1505ee020ea

PATIENT
  Age: 56 Year
  Sex: Female
  Weight: 45 kg

DRUGS (8)
  1. ALENDRONIC ACID [Suspect]
     Active Substance: ALENDRONIC ACID
     Indication: Product used for unknown indication
     Dosage: 1 DOSAGE FORM, ONCE A DAY (ONE TO BE TAKEN ON THE SAME DAY EACH WEEK)
     Route: 065
     Dates: start: 20250110, end: 20250206
  2. CHOLECALCIFEROL [Concomitant]
     Active Substance: CHOLECALCIFEROL
     Indication: Osteoporosis
     Route: 065
     Dates: start: 20250110, end: 20250222
  3. DICLOFENAC DIETHYLAMINE [Concomitant]
     Active Substance: DICLOFENAC DIETHYLAMINE
     Indication: Product used for unknown indication
     Route: 065
     Dates: start: 20250130, end: 20250403
  4. MORPHINE [Concomitant]
     Active Substance: MORPHINE
     Indication: Product used for unknown indication
     Route: 065
     Dates: start: 20250203
  5. LIDOCAINE [Concomitant]
     Active Substance: LIDOCAINE
     Indication: Neck pain
     Route: 065
     Dates: start: 20250206
  6. AMOXICILLIN [Concomitant]
     Active Substance: AMOXICILLIN
     Indication: Chronic obstructive pulmonary disease
     Dosage: 1 DOSAGE FORM, 3 TIMES A DAY (ONE TO BE TAKEN THREE TIMES A DAY)
     Route: 065
     Dates: start: 20250404
  7. CLARITHROMYCIN [Concomitant]
     Active Substance: CLARITHROMYCIN
     Indication: Chronic obstructive pulmonary disease
     Dosage: 1 DOSAGE FORM, TWO TIMES A DAY (ONE TO BE TAKEN TWICE A DAY)
     Route: 065
     Dates: start: 20250404
  8. PREDNISOLONE [Concomitant]
     Active Substance: PREDNISOLONE
     Indication: Chronic obstructive pulmonary disease
     Dosage: 6 DOSAGE FORM, ONCE A DAY (SIX TO BE TAKEN EACH DAY ( RESCUE PACK )
     Route: 065
     Dates: start: 20250404

REACTIONS (4)
  - Arthralgia [Unknown]
  - Musculoskeletal pain [Recovering/Resolving]
  - Mobility decreased [Unknown]
  - Neuralgia [Unknown]

NARRATIVE: CASE EVENT DATE: 20250128
